FAERS Safety Report 16049577 (Version 2)
Quarter: 2019Q1

REPORT INFORMATION
  Report Type: Spontaneous
  Country: DE (occurrence: DE)
  Receive Date: 20190307
  Receipt Date: 20190319
  Transmission Date: 20190418
  Serious: Yes (Other)
  Sender: FDA-Public Use
  Company Number: DE-GILEAD-2019-0394879

PATIENT
  Age: 55 Year
  Sex: Female

DRUGS (1)
  1. HARVONI [Suspect]
     Active Substance: LEDIPASVIR\SOFOSBUVIR
     Indication: CHRONIC HEPATITIS C
     Dosage: UNK
     Route: 065
     Dates: start: 201506

REACTIONS (3)
  - Hepatic cirrhosis [Unknown]
  - Treatment failure [Unknown]
  - Genotype drug resistance test positive [Unknown]
